FAERS Safety Report 24543234 (Version 1)
Quarter: 2024Q4

REPORT INFORMATION
  Report Type: Spontaneous
  Country: US (occurrence: US)
  Receive Date: 20241024
  Receipt Date: 20241024
  Transmission Date: 20250114
  Serious: Yes (Hospitalization, Other)
  Sender: SPECGX
  Company Number: US-SPECGX-T202402091

PATIENT
  Age: 40 Year
  Sex: Female

DRUGS (2)
  1. METHADONE [Suspect]
     Active Substance: METHADONE HYDROCHLORIDE
     Indication: Drug dependence
     Dosage: 70 MILLIGRAM, QD
     Route: 065
  2. METHADONE [Suspect]
     Active Substance: METHADONE HYDROCHLORIDE
     Indication: Drug withdrawal syndrome
     Dosage: 10 MILLIGRAM, PRN (5 DAYS AFTER ADMISSION)
     Route: 065

REACTIONS (15)
  - Sinus bradycardia [Unknown]
  - Pulseless electrical activity [Unknown]
  - Ventricular extrasystoles [Unknown]
  - Drug withdrawal syndrome [Recovering/Resolving]
  - Cardiac arrest [Unknown]
  - Electrocardiogram QT prolonged [Not Recovered/Not Resolved]
  - Ventricular tachycardia [Unknown]
  - Ventricular fibrillation [Unknown]
  - Torsade de pointes [Unknown]
  - Agitation [Recovering/Resolving]
  - Confusional state [Recovering/Resolving]
  - Hallucination [Recovering/Resolving]
  - Hypokalaemia [Unknown]
  - Endotracheal intubation [Unknown]
  - Cardioversion [Unknown]
